FAERS Safety Report 5342431-1 (Version None)
Quarter: 2007Q2

REPORT INFORMATION
  Report Type: 
  Country: None (occurrence: None)
  Receive Date: 20070416
  Receipt Date: 20070223
  Transmission Date: 20071010
  Serious: No
  Sender: FDA-Public Use
  Company Number: 2007SP000627

PATIENT
  Age: 61 Year
  Sex: Male
  Weight: 89.8122 kg

DRUGS (4)
  1. LUNESTA [Suspect]
     Indication: INSOMNIA
     Dosage: 2 MG;HS;ORAL
     Route: 048
     Dates: start: 20070128
  2. ANTIHYPERTENSIVES [Concomitant]
  3. POTASSIUM ACETATE [Concomitant]
  4. WATER PILLS [Concomitant]

REACTIONS (6)
  - DRUG INEFFECTIVE [None]
  - DRY THROAT [None]
  - DYSGEUSIA [None]
  - FOREIGN BODY TRAUMA [None]
  - MIDDLE INSOMNIA [None]
  - SOMNOLENCE [None]
